FAERS Safety Report 8175507-4 (Version None)
Quarter: 2012Q1

REPORT INFORMATION
  Report Type: 
  Country: None (occurrence: None)
  Receive Date: 20120229
  Receipt Date: 20120227
  Transmission Date: 20120608
  Serious: Yes (Hospitalization, Other)
  Sender: FDA-Public Use
  Company Number: US-MERCK-1108USA01356

PATIENT
  Age: 71 Year
  Sex: Female
  Weight: 74 kg

DRUGS (2)
  1. ACTONEL [Suspect]
     Route: 065
     Dates: end: 20050101
  2. FOSAMAX [Suspect]
     Indication: OSTEOPOROSIS
     Route: 048
     Dates: start: 19950101, end: 20010101

REACTIONS (30)
  - GASTROINTESTINAL MOTILITY DISORDER [None]
  - RHINITIS ALLERGIC [None]
  - HIATUS HERNIA [None]
  - ARTHRITIS [None]
  - ABSCESS [None]
  - GINGIVAL DISORDER [None]
  - OSTEOARTHRITIS [None]
  - OSTEOMYELITIS [None]
  - NON-CARDIAC CHEST PAIN [None]
  - LEFT VENTRICULAR HYPERTROPHY [None]
  - HYPOTHYROIDISM [None]
  - ARTHROPATHY [None]
  - GALLBLADDER DISORDER [None]
  - GASTRITIS [None]
  - GLAUCOMA [None]
  - FISTULA [None]
  - DEVICE FAILURE [None]
  - OSTEONECROSIS OF JAW [None]
  - TOOTH DISORDER [None]
  - DYSPHONIA [None]
  - TRANSIENT ISCHAEMIC ATTACK [None]
  - GASTROOESOPHAGEAL REFLUX DISEASE [None]
  - CHEST PAIN [None]
  - AORTIC VALVE INCOMPETENCE [None]
  - ROTATOR CUFF SYNDROME [None]
  - SKIN CANCER [None]
  - CARDIAC MURMUR [None]
  - ESSENTIAL HYPERTENSION [None]
  - TONSILLAR DISORDER [None]
  - IMPAIRED HEALING [None]
